FAERS Safety Report 6507651-9 (Version None)
Quarter: 2009Q4

REPORT INFORMATION
  Report Type: 
  Country: None (occurrence: None)
  Receive Date: 20091216
  Receipt Date: 20091201
  Transmission Date: 20100525
  Serious: Yes (Life-Threatening, Hospitalization)
  Sender: FDA-Public Use
  Company Number: IDA-00299

PATIENT
  Age: 56 Year
  Sex: Male

DRUGS (2)
  1. INDERAL [Suspect]
     Indication: ANGINA PECTORIS
     Dosage: 320 MG DAILY; ORAL; FORMULATION UNKNOWN
     Route: 048
  2. INDERAL [Suspect]
     Indication: HYPERTENSION
     Dosage: 320 MG DAILY; ORAL; FORMULATION UNKNOWN
     Route: 048

REACTIONS (5)
  - ABDOMINAL PAIN [None]
  - LARGE INTESTINAL HAEMORRHAGE [None]
  - PERITONITIS SCLEROSING [None]
  - PLEURAL EFFUSION [None]
  - WEIGHT DECREASED [None]
